FAERS Safety Report 15120096 (Version 2)
Quarter: 2018Q3

REPORT INFORMATION
  Report Type: Report from Study
  Country: MX (occurrence: MX)
  Receive Date: 20180709
  Receipt Date: 20180712
  Transmission Date: 20181010
  Serious: Yes (Death, Other)
  Sender: FDA-Public Use
  Company Number: PHHY2018MX040570

PATIENT
  Age: 73 Year
  Sex: Male
  Weight: 70 kg

DRUGS (6)
  1. ARANESP [Concomitant]
     Active Substance: DARBEPOETIN ALFA
     Indication: MYELODYSPLASTIC SYNDROME
     Dosage: 1 OT, UNK (EVERY 8 DAYS)
     Route: 058
     Dates: start: 201802, end: 201806
  2. REVOLADE [Suspect]
     Active Substance: ELTROMBOPAG
     Indication: MYELODYSPLASTIC SYNDROME
     Dosage: 1 DF, QD
     Route: 048
     Dates: start: 201802, end: 201804
  3. ASPIRIN. [Concomitant]
     Active Substance: ASPIRIN
     Indication: ANTICOAGULANT THERAPY
     Dosage: 1 DF, QD
     Route: 048
     Dates: start: 2015, end: 201802
  4. LOSARTAN. [Concomitant]
     Active Substance: LOSARTAN
     Indication: HYPERTENSION
     Dosage: 1 DF, QD
     Route: 048
     Dates: end: 201806
  5. LANTUS [Concomitant]
     Active Substance: INSULIN GLARGINE
     Indication: DIABETES MELLITUS
     Dosage: UNK
     Route: 058
     Dates: end: 201806
  6. PROPRANOLOL [Concomitant]
     Active Substance: PROPRANOLOL HYDROCHLORIDE
     Indication: HYPERTENSION
     Dosage: 1 DF, QD
     Route: 048
     Dates: end: 201806

REACTIONS (12)
  - Contusion [Fatal]
  - Movement disorder [Fatal]
  - Delirium [Fatal]
  - Nausea [Fatal]
  - Renal impairment [Unknown]
  - Dental caries [Fatal]
  - Organ failure [Fatal]
  - Dysuria [Unknown]
  - Cardio-respiratory arrest [Fatal]
  - Pallor [Fatal]
  - Myelodysplastic syndrome [Fatal]
  - Respiratory failure [Unknown]

NARRATIVE: CASE EVENT DATE: 201802
